FAERS Safety Report 18011100 (Version 1)
Quarter: 2020Q3

REPORT INFORMATION
  Report Type: Other
  Country: GB (occurrence: GB)
  Receive Date: 20200712
  Receipt Date: 20200712
  Transmission Date: 20201103
  Serious: Yes (Hospitalization, Other)
  Sender: FDA-Public Use
  Company Number: GB-IPCA LABORATORIES LIMITED-IPC-2020-GB-002094

PATIENT

DRUGS (17)
  1. GANFORT [Concomitant]
     Active Substance: BIMATOPROST\TIMOLOL
     Indication: PRODUCT USED FOR UNKNOWN INDICATION
     Dosage: 1 DROP, QD, NIGHT. 0.3MG/ML / 5MG/ML
     Route: 061
  2. FEXOFENADINE [Concomitant]
     Active Substance: FEXOFENADINE HYDROCHLORIDE
     Indication: PRODUCT USED FOR UNKNOWN INDICATION
     Dosage: 180 MILLIGRAM, QD
     Route: 048
  3. CALCICHEW D3 [Concomitant]
     Active Substance: CALCIUM\CHOLECALCIFEROL
     Indication: PRODUCT USED FOR UNKNOWN INDICATION
     Dosage: 2 DOSAGE FORM, QD, MORNING
     Route: 048
  4. MIRTAZAPINE. [Concomitant]
     Active Substance: MIRTAZAPINE
     Indication: PRODUCT USED FOR UNKNOWN INDICATION
     Dosage: 15 MILLIGRAM, QD
     Route: 048
     Dates: end: 20200622
  5. PRAVASTATIN. [Concomitant]
     Active Substance: PRAVASTATIN
     Indication: PRODUCT USED FOR UNKNOWN INDICATION
     Dosage: 40 MILLIGRAM, QD, NIGHT
     Route: 048
  6. LISINOPRIL. [Concomitant]
     Active Substance: LISINOPRIL
     Indication: PRODUCT USED FOR UNKNOWN INDICATION
     Dosage: 5 MILLIGRAM, QD
     Route: 048
  7. EZETROL [Concomitant]
     Active Substance: EZETIMIBE
     Indication: PRODUCT USED FOR UNKNOWN INDICATION
     Dosage: 10 MILLIGRAM, QD
     Route: 048
  8. AMLODIPINE [Concomitant]
     Active Substance: AMLODIPINE BESYLATE
     Indication: PRODUCT USED FOR UNKNOWN INDICATION
     Dosage: 5 MILLIGRAM, QD
     Route: 048
  9. DORZOLAMIDE [Concomitant]
     Active Substance: DORZOLAMIDE
     Indication: PRODUCT USED FOR UNKNOWN INDICATION
     Dosage: 2 DROP, QD
     Route: 061
  10. ALLOPURINOL TABLETS [Suspect]
     Active Substance: ALLOPURINOL
     Indication: PRODUCT USED FOR UNKNOWN INDICATION
     Dosage: 100 MILLIGRAM, QD
     Route: 048
     Dates: start: 20200512, end: 20200616
  11. NITROLINGUAL [Concomitant]
     Active Substance: NITROGLYCERIN
     Indication: PRODUCT USED FOR UNKNOWN INDICATION
     Dosage: 1?2 SPRAYS
     Route: 060
  12. LEVOTHYROXINE SODIUM. [Concomitant]
     Active Substance: LEVOTHYROXINE SODIUM
     Indication: PRODUCT USED FOR UNKNOWN INDICATION
     Dosage: 62.5 MICROGRAM, QD, MORNING
     Route: 048
  13. LACTULOSE. [Concomitant]
     Active Substance: LACTULOSE
     Indication: PRODUCT USED FOR UNKNOWN INDICATION
     Dosage: 20 MILLILITER, QD, TWICE DAILY/AS NECESSARY. 3.1?3.7G/5ML
     Route: 048
  14. CARBOMERS [Concomitant]
     Indication: PRODUCT USED FOR UNKNOWN INDICATION
     Dosage: 1 DROP, QD, 1 DROP MORNING
     Route: 065
  15. BISOPROLOL [Concomitant]
     Active Substance: BISOPROLOL
     Indication: PRODUCT USED FOR UNKNOWN INDICATION
     Dosage: 10 MILLIGRAM, QD
     Route: 048
  16. FUROSEMIDE. [Concomitant]
     Active Substance: FUROSEMIDE
     Indication: PRODUCT USED FOR UNKNOWN INDICATION
     Dosage: 20 MILLIGRAM, QD, MORNING
     Route: 048
  17. WARFARIN [Concomitant]
     Active Substance: WARFARIN
     Indication: PRODUCT USED FOR UNKNOWN INDICATION
     Dosage: AS DIRECTED
     Route: 048

REACTIONS (4)
  - Petechiae [Unknown]
  - Thrombocytopenia [Recovered/Resolved]
  - Acute kidney injury [Unknown]
  - Gingival bleeding [Unknown]

NARRATIVE: CASE EVENT DATE: 20200609
